FAERS Safety Report 7715430-X (Version None)
Quarter: 2011Q3

REPORT INFORMATION
  Report Type: 
  Country: None (occurrence: None)
  Receive Date: 20110829
  Receipt Date: 20110822
  Transmission Date: 20111222
  Serious: Yes (Hospitalization)
  Sender: FDA-Public Use
  Company Number: JP-JNJFOC-20110500383

PATIENT
  Age: 8 Decade
  Sex: Female

DRUGS (2)
  1. GALANTAMINE HYDROBROMIDE [Suspect]
     Indication: DEMENTIA ALZHEIMER'S TYPE
     Route: 048
     Dates: start: 20110422, end: 20110425
  2. ANTIBIOTIC PREPARATION [Concomitant]
     Route: 048

REACTIONS (2)
  - BRADYCARDIA [None]
  - PNEUMONIA [None]
